FAERS Safety Report 10535178 (Version 1)
Quarter: 2014Q4

REPORT INFORMATION
  Report Type: Spontaneous
  Country: ES (occurrence: ES)
  Receive Date: 20141022
  Receipt Date: 20141022
  Transmission Date: 20150529
  Serious: Yes (Hospitalization)
  Sender: FDA-Public Use
  Company Number: PHHY2014ES134433

PATIENT
  Age: 11 Year
  Sex: Female

DRUGS (1)
  1. TOPIRAMATE. [Suspect]
     Active Substance: TOPIRAMATE
     Indication: MIGRAINE
     Route: 065

REACTIONS (15)
  - Unresponsive to stimuli [Recovered/Resolved]
  - Muscular weakness [Recovered/Resolved]
  - Hypertransaminasaemia [Recovered/Resolved]
  - Coordination abnormal [Recovered/Resolved]
  - Prerenal failure [Recovered/Resolved]
  - Troponin increased [Recovered/Resolved]
  - Loss of consciousness [Recovered/Resolved]
  - Mental impairment [Recovered/Resolved]
  - Cardiac output decreased [Recovered/Resolved]
  - Body temperature increased [Recovered/Resolved]
  - Blood creatine phosphokinase increased [Recovered/Resolved]
  - Incoherent [Recovered/Resolved]
  - Heat stroke [Recovered/Resolved]
  - Posture abnormal [Recovered/Resolved]
  - Stupor [Recovered/Resolved]
